FAERS Safety Report 9155605 (Version 5)
Quarter: 2013Q4

REPORT INFORMATION
  Report Type: Spontaneous
  Country: JP (occurrence: JP)
  Receive Date: 20130311
  Receipt Date: 20131126
  Transmission Date: 20140711
  Serious: Yes (Hospitalization)
  Sender: FDA-Public Use
  Company Number: JP-009507513-1303JPN001687

PATIENT
  Age: 61 Year
  Sex: Female
  Weight: 49 kg

DRUGS (8)
  1. DECADRON PHOSPHATE INJECTION [Suspect]
     Indication: PALMAR-PLANTAR ERYTHRODYSAESTHESIA SYNDROME
     Dosage: 16 MG, QD
     Dates: start: 20100819, end: 20100824
  2. DECADRON PHOSPHATE INJECTION [Suspect]
     Dosage: 8 MG, QD
     Dates: start: 20100824, end: 20100825
  3. MOSAPRIDE CITRATE [Concomitant]
     Dosage: 15 MG DAILY
     Route: 048
  4. PRAVASTATIN SODIUM [Concomitant]
     Indication: HYPERLIPIDAEMIA
     Dosage: 10 MG DAILY
     Route: 048
  5. DOXIL [Concomitant]
     Dosage: 70 MG DIVIDED DOSE FREQUENCY U
     Dates: start: 20100820
  6. PYRIDOXINE [Concomitant]
     Dosage: 300 MG, DAILY
  7. CEFCAPENE PIVOXIL HYDROCHLORIDE [Concomitant]
     Route: 048
  8. LEVOFLOXACIN [Concomitant]
     Route: 048

REACTIONS (1)
  - Pneumocystis jirovecii pneumonia [Recovered/Resolved]
